FAERS Safety Report 23718627 (Version 1)
Quarter: 2024Q2

REPORT INFORMATION
  Report Type: Spontaneous
  Country: US (occurrence: US)
  Receive Date: 20240408
  Receipt Date: 20240408
  Transmission Date: 20240716
  Serious: Yes (Other)
  Sender: FDA-Public Use
  Company Number: US-PFIZER INC-0015667301PHAMED

PATIENT
  Sex: Female
  Weight: 3.175 kg

DRUGS (1)
  1. FRAGMIN [Suspect]
     Active Substance: DALTEPARIN SODIUM
     Indication: Thrombosis
     Dosage: 5000.0 IU, 1X/DAY
     Route: 064
     Dates: start: 19981001, end: 19990402

REACTIONS (2)
  - Foetal exposure during pregnancy [Recovered/Resolved]
  - Lower limb fracture [Recovered/Resolved]

NARRATIVE: CASE EVENT DATE: 19981001
